FAERS Safety Report 10136363 (Version 3)
Quarter: 2014Q2

REPORT INFORMATION
  Report Type: Spontaneous
  Country: GR (occurrence: None)
  Receive Date: 20140425
  Receipt Date: 20140611
  Transmission Date: 20141212
  Serious: Yes (Death)
  Sender: FDA-Public Use
  Company Number: 2014MPI00402

PATIENT
  Age: 64 Year
  Sex: Female
  Weight: 72 kg

DRUGS (6)
  1. ADCETRIS [Suspect]
     Indication: HODGKIN^S DISEASE REFRACTORY
     Route: 042
     Dates: start: 20140327, end: 20140327
  2. TAZOCIN [Concomitant]
  3. TARGOCID [Concomitant]
  4. SOLURIC [Concomitant]
  5. TRANEXAMIC ACID (TRANEXAMIC ACID) [Concomitant]
  6. BEGALIN [Concomitant]

REACTIONS (2)
  - Toxic epidermal necrolysis [None]
  - Sepsis [None]
